FAERS Safety Report 5643743-4 (Version None)
Quarter: 2008Q1

REPORT INFORMATION
  Report Type: 
  Country: None (occurrence: None)
  Receive Date: 20080226
  Receipt Date: 20080215
  Transmission Date: 20080703
  Serious: Yes (Other)
  Sender: FDA-Public Use
  Company Number: 44992

PATIENT
  Age: 24 Year
  Sex: Male

DRUGS (3)
  1. DICYCLOMINE HCL [Suspect]
     Indication: ABDOMINAL PAIN
     Dosage: 20MG ONCE IV
     Route: 042
     Dates: start: 20080204
  2. DICYCLOMINE HCL [Suspect]
     Indication: DIARRHOEA
     Dosage: 20MG ONCE IV
     Route: 042
     Dates: start: 20080204
  3. DICYCLOMINE HCL [Suspect]
     Indication: VOMITING
     Dosage: 20MG ONCE IV
     Route: 042
     Dates: start: 20080204

REACTIONS (2)
  - INCORRECT ROUTE OF DRUG ADMINISTRATION [None]
  - MEDICATION ERROR [None]
